FAERS Safety Report 6664206-3 (Version None)
Quarter: 2010Q2

REPORT INFORMATION
  Report Type: 
  Country: None (occurrence: None)
  Receive Date: 20100401
  Receipt Date: 20100317
  Transmission Date: 20101027
  Serious: No
  Sender: FDA-Public Use
  Company Number: US-PFIZER INC-2003000758

PATIENT
  Sex: Male
  Weight: 83.91 kg

DRUGS (2)
  1. NORVASC [Suspect]
     Dosage: 10 MG DAILY
     Route: 048
     Dates: start: 20020401
  2. CAFFEINE [Suspect]
     Route: 048

REACTIONS (2)
  - BLOOD CHOLESTEROL INCREASED [None]
  - BREAST MASS [None]
